FAERS Safety Report 12134705 (Version 2)
Quarter: 2017Q1

REPORT INFORMATION
  Report Type: Spontaneous
  Country: US (occurrence: US)
  Receive Date: 20160301
  Receipt Date: 20170310
  Transmission Date: 20170428
  Serious: No
  Sender: FDA-Public Use
  Company Number: US-AUROBINDO-AUR-APL-2015-03563

PATIENT
  Age: 73 Year
  Sex: Female
  Weight: 68.27 kg

DRUGS (2)
  1. LEVETIRACETAM TABLET [Suspect]
     Active Substance: LEVETIRACETAM
     Dosage: 1000 MG, TWO TIMES A DAY
     Route: 048
     Dates: start: 20150407
  2. LEVETIRACETAM TABLET [Suspect]
     Active Substance: LEVETIRACETAM
     Indication: SEIZURE
     Dosage: 750 MG, TWO TIMES A DAY
     Route: 048
     Dates: start: 20150403

REACTIONS (2)
  - No adverse event [Recovered/Resolved]
  - Incorrect dose administered [Recovered/Resolved]

NARRATIVE: CASE EVENT DATE: 20150417
